FAERS Safety Report 14359188 (Version 2)
Quarter: 2018Q1

REPORT INFORMATION
  Report Type: Report from Study
  Country: US (occurrence: US)
  Receive Date: 20180105
  Receipt Date: 20180105
  Transmission Date: 20180509
  Serious: No
  Sender: FDA-Public Use
  Company Number: US-AMGEN-USASL2016083569

PATIENT
  Age: 55 Year
  Sex: Female

DRUGS (1)
  1. REPATHA [Suspect]
     Active Substance: EVOLOCUMAB
     Indication: PRODUCT USED FOR UNKNOWN INDICATION
     Dosage: 140 MG, Q2WK
     Route: 065

REACTIONS (7)
  - Injection site erythema [Recovering/Resolving]
  - Sinusitis [Recovering/Resolving]
  - Injection site bruising [Recovering/Resolving]
  - Uterine dilation and curettage [Unknown]
  - Feeling abnormal [Unknown]
  - Injection site pain [Recovering/Resolving]
  - Incorrect drug administration rate [Unknown]
